FAERS Safety Report 23769307 (Version 1)
Quarter: 2024Q2

REPORT INFORMATION
  Report Type: Spontaneous
  Country: AR (occurrence: AR)
  Receive Date: 20240422
  Receipt Date: 20240422
  Transmission Date: 20240717
  Serious: No
  Sender: FDA-Public Use
  Company Number: AR-PFIZER INC-202400079651

PATIENT
  Age: 6 Year
  Sex: Female

DRUGS (1)
  1. GENOTROPIN [Suspect]
     Active Substance: SOMATROPIN
     Dosage: 0.9 MG, DAILY
     Dates: start: 20220427

REACTIONS (2)
  - Poor quality device used [Not Recovered/Not Resolved]
  - Device information output issue [Not Recovered/Not Resolved]

NARRATIVE: CASE EVENT DATE: 20240330
